FAERS Safety Report 4511696-8 (Version None)
Quarter: 2004Q4

REPORT INFORMATION
  Report Type: 
  Country: None (occurrence: None)
  Receive Date: 20041129
  Receipt Date: 20040303
  Transmission Date: 20050328
  Serious: Yes (Hospitalization)
  Sender: FDA-Public Use
  Company Number: PHNU2004DE01085

PATIENT
  Sex: Female

DRUGS (2)
  1. GLEEVEC [Suspect]
     Indication: GASTROINTESTINAL STROMAL TUMOUR
     Dosage: 400MG/DAY
     Route: 048
     Dates: start: 20020101, end: 20040101
  2. GLEEVEC [Suspect]
     Dosage: 400MG/DAY
     Route: 048

REACTIONS (4)
  - DIARRHOEA [None]
  - GASTRECTOMY [None]
  - NAUSEA [None]
  - VOMITING [None]
